FAERS Safety Report 20979496 (Version 2)
Quarter: 2024Q2

REPORT INFORMATION
  Report Type: Spontaneous
  Country: CZ (occurrence: CZ)
  Receive Date: 20220620
  Receipt Date: 20240523
  Transmission Date: 20240716
  Serious: Yes (Other)
  Sender: FDA-Public Use
  Company Number: CZ-CELLTRION INC.-2019CZ025822

PATIENT

DRUGS (19)
  1. RITUXIMAB [Suspect]
     Active Substance: RITUXIMAB
     Indication: Mantle cell lymphoma
     Dosage: THREE CYCLES OF R CHOP ALTERNATING WITH THREE CYCLES OF R ARA C
     Route: 065
     Dates: start: 201303, end: 201307
  2. RITUXIMAB [Suspect]
     Active Substance: RITUXIMAB
     Dosage: EIGHT MAINTENANCE DOSES OF RITUXIMAB IN THREE MONTH INTERVAL
     Dates: start: 201310, end: 201508
  3. RITUXIMAB [Suspect]
     Active Substance: RITUXIMAB
     Dosage: 6 CYCLES WITH BENDAMUSTINE
     Dates: start: 201608, end: 201701
  4. RITUXIMAB [Suspect]
     Active Substance: RITUXIMAB
     Dosage: THREE CYCLES OF REDUCED R DHAP
  5. RITUXIMAB [Suspect]
     Active Substance: RITUXIMAB
     Dosage: 3 CYCLES
     Route: 065
  6. RITUXIMAB [Suspect]
     Active Substance: RITUXIMAB
     Dosage: 8 MAINTENANCE DOSES OF RITUXIMAB WERE APPLIED IN 3 MONTHS INTERVALS
     Route: 065
     Dates: start: 201310, end: 201508
  7. BENDAMUSTINE [Suspect]
     Active Substance: BENDAMUSTINE
     Indication: Mantle cell lymphoma
     Dosage: 6 CYCLES WITH RITUXIMAB
     Dates: start: 201608, end: 201701
  8. CYCLOPHOSPHAMIDE\DOXORUBICIN\PREDNISONE\VINCRISTINE [Suspect]
     Active Substance: CYCLOPHOSPHAMIDE\DOXORUBICIN\PREDNISONE\VINCRISTINE
     Indication: Mantle cell lymphoma
     Dosage: THREE CYCLES OF R CHOP ALTERNATING WITH THREE CYCLES OF R ARA C
     Dates: start: 201303, end: 201307
  9. CYTARABINE [Suspect]
     Active Substance: CYTARABINE
     Indication: Mantle cell lymphoma
     Dosage: THREE CYCLES OF R CHOP ALTERNATING WITH THREE CYCLES OF R ARA C
     Dates: start: 201303, end: 201307
  10. CISPLATIN\CYTARABINE\DEXAMETHASONE [Suspect]
     Active Substance: CISPLATIN\CYTARABINE\DEXAMETHASONE
     Indication: Mantle cell lymphoma
     Dosage: THREE CYCLES OF REDUCED IMMUNOCHEMOTHERAPY R DHAP
  11. CISPLATIN [Suspect]
     Active Substance: CISPLATIN
     Indication: Mantle cell lymphoma
     Dosage: 3 CYCLES
     Route: 065
  12. CYTARABINE [Suspect]
     Active Substance: CYTARABINE
     Indication: Mantle cell lymphoma
     Dosage: 3 CYCLES
     Route: 065
  13. CYTARABINE [Suspect]
     Active Substance: CYTARABINE
     Dosage: 3 CYCLES OF R-ARA CUNK
     Route: 065
  14. DEXAMETHASONE [Suspect]
     Active Substance: DEXAMETHASONE
     Indication: Mantle cell lymphoma
     Dosage: 3 CYCLES
     Route: 065
  15. CYCLOPHOSPHAMIDE [Suspect]
     Active Substance: CYCLOPHOSPHAMIDE
     Indication: Mantle cell lymphoma
     Dosage: 3 CYCLES OF R-CHOP
     Route: 065
     Dates: start: 201303, end: 201307
  16. VINCRISTINE [Suspect]
     Active Substance: VINCRISTINE
     Indication: Mantle cell lymphoma
     Dosage: 3 CYCLES OF R-CHOP
     Route: 065
     Dates: start: 201303, end: 201307
  17. PREDNISONE [Suspect]
     Active Substance: PREDNISONE
     Indication: Mantle cell lymphoma
     Dosage: 3 CYCLES OF R-CHOP
     Route: 065
     Dates: start: 201303, end: 201307
  18. DOXORUBICIN [Suspect]
     Active Substance: DOXORUBICIN
     Indication: Mantle cell lymphoma
     Dosage: THREE CYCLES OF R CHOP ALTERNATING WITH THREE CYCLES OF R ARA C
     Route: 065
     Dates: start: 201303, end: 201307
  19. IBRUTINIB [Concomitant]
     Active Substance: IBRUTINIB
     Indication: Mantle cell lymphoma
     Dosage: 560 MG DAILY; AFTER SIX MONTHS OF TREATMENT, COMPLETE REMISSION WAS ACHIEVED
     Dates: start: 201805

REACTIONS (3)
  - Mantle cell lymphoma recurrent [Recovering/Resolving]
  - Drug ineffective [Unknown]
  - Intentional product use issue [Unknown]

NARRATIVE: CASE EVENT DATE: 20151101
